FAERS Safety Report 13013820 (Version 1)
Quarter: 2016Q4

REPORT INFORMATION
  Report Type: Other
  Country: DE (occurrence: DE)
  Receive Date: 20161209
  Receipt Date: 20161209
  Transmission Date: 20170207
  Serious: Yes (Hospitalization)
  Sender: FDA-Public Use
  Company Number: DE-CELLTRION INC.-2016DE013051

PATIENT

DRUGS (13)
  1. IBEROGAST [Concomitant]
     Active Substance: HERBALS
  2. GINKGO                             /01003101/ [Concomitant]
  3. INFLECTRA [Suspect]
     Active Substance: INFLIXIMAB-DYYB
     Dosage: 170 MG, UNK
     Dates: end: 20160711
  4. RANITIDIN [Concomitant]
     Active Substance: RANITIDINE HYDROCHLORIDE
  5. AMITRIPTYLIN [Concomitant]
     Active Substance: AMITRIPTYLINE
  6. ASS AL [Concomitant]
  7. VALSARTAN AL [Concomitant]
  8. PANTOPRAZOLE [Concomitant]
     Active Substance: PANTOPRAZOLE SODIUM
  9. KREON                              /00014701/ [Concomitant]
     Active Substance: PANCRELIPASE
  10. MEDIVITAN /01079901/ [Concomitant]
  11. L-THYROXIN [Concomitant]
     Active Substance: LEVOTHYROXINE SODIUM
  12. VITAMIN B12 [Concomitant]
     Active Substance: CYANOCOBALAMIN
  13. IBEROGAST [Concomitant]
     Active Substance: HERBALS

REACTIONS (1)
  - Acute left ventricular failure [Recovered/Resolved]

NARRATIVE: CASE EVENT DATE: 20160410
